FAERS Safety Report 15708911 (Version 11)
Quarter: 2019Q4

REPORT INFORMATION
  Report Type: Report from Study
  Country: DO (occurrence: DO)
  Receive Date: 20181211
  Receipt Date: 20191110
  Transmission Date: 20200122
  Serious: Yes (Other)
  Sender: FDA-Public Use
  Company Number: PHHY2018DO109960

PATIENT
  Sex: Male
  Weight: 81.64 kg

DRUGS (10)
  1. GILENYA [Suspect]
     Active Substance: FINGOLIMOD HYDROCHLORIDE
     Indication: MULTIPLE SCLEROSIS
     Dosage: 0.5 MG, UNK
     Route: 048
     Dates: start: 201808
  2. APROVEL [Concomitant]
     Active Substance: IRBESARTAN
     Indication: MENTAL DISORDER
     Dosage: 150 MG, QD
     Route: 065
  3. LANZEP [Concomitant]
     Indication: MENTAL DISORDER
     Dosage: 5 OT, BID
     Route: 065
  4. VITAMIN B3 [Concomitant]
     Active Substance: NIACIN
     Indication: PRODUCT USED FOR UNKNOWN INDICATION
     Dosage: UNK
     Route: 065
  5. GILENYA [Suspect]
     Active Substance: FINGOLIMOD HYDROCHLORIDE
     Dosage: 0.5 MG, QD (BEFORE BREAKFAST)
     Route: 065
  6. BACLOFEN. [Concomitant]
     Active Substance: BACLOFEN
     Indication: PRODUCT USED FOR UNKNOWN INDICATION
     Route: 065
  7. MAGNESIUM [Concomitant]
     Active Substance: MAGNESIUM
     Indication: MENTAL DISORDER
     Dosage: UNK
     Route: 065
  8. VITAMIN B [Concomitant]
     Active Substance: VITAMIN B
     Indication: MULTIPLE SCLEROSIS
     Dosage: UNK
     Route: 065
  9. GILENYA [Suspect]
     Active Substance: FINGOLIMOD HYDROCHLORIDE
     Dosage: 0.5 MG, QD (BEFORE GOING TO SLEEP)
     Route: 065
  10. BIOTIN [Concomitant]
     Active Substance: BIOTIN
     Indication: PRODUCT USED FOR UNKNOWN INDICATION
     Dosage: UNK
     Route: 065

REACTIONS (27)
  - Muscle spasticity [Unknown]
  - Heart rate decreased [Unknown]
  - Hypertension [Unknown]
  - Multiple sclerosis relapse [Unknown]
  - Pneumonia [Recovered/Resolved]
  - Cardiac disorder [Unknown]
  - Discomfort [Recovered/Resolved]
  - Asthenia [Unknown]
  - Blindness unilateral [Unknown]
  - Syncope [Recovered/Resolved]
  - Chest pain [Recovered/Resolved]
  - Muscular weakness [Unknown]
  - Laziness [Unknown]
  - Pulmonary congestion [Unknown]
  - Pyrexia [Unknown]
  - Gait disturbance [Unknown]
  - Immunodeficiency [Unknown]
  - Blood pressure fluctuation [Unknown]
  - Limb discomfort [Unknown]
  - Weight decreased [Unknown]
  - Malaise [Unknown]
  - Fall [Recovering/Resolving]
  - Productive cough [Recovered/Resolved]
  - Eye disorder [Unknown]
  - Muscular weakness [Recovered/Resolved]
  - Depressed mood [Unknown]
  - Emotional disorder [Unknown]
